FAERS Safety Report 11910025 (Version 1)
Quarter: 2016Q1

REPORT INFORMATION
  Report Type: Spontaneous
  Country: US (occurrence: None)
  Receive Date: 20160111
  Receipt Date: 20160111
  Transmission Date: 20160526
  Serious: No
  Sender: FDA-Public Use
  Company Number: None

PATIENT
  Age: 17 Year
  Sex: Female
  Weight: 90.72 kg

DRUGS (14)
  1. ADDERALL XR [Suspect]
     Active Substance: AMPHETAMINE ASPARTATE\AMPHETAMINE SULFATE\DEXTROAMPHETAMINE SACCHARATE\DEXTROAMPHETAMINE SULFATE
     Indication: ATTENTION DEFICIT/HYPERACTIVITY DISORDER
     Dosage: 1 PILL
     Route: 048
     Dates: start: 20151015, end: 20160110
  2. ANTIHISTAMINES [Concomitant]
     Active Substance: ANTIHISTAMINES NOS
  3. TRAZODONE HYDROCHLORIDE. [Concomitant]
     Active Substance: TRAZODONE HYDROCHLORIDE
  4. MANNATECH ^PLUS^ CAPSULES [Concomitant]
  5. VISTARIL [Concomitant]
     Active Substance: HYDROXYZINE PAMOATE
  6. MAGNESIUM [Concomitant]
     Active Substance: MAGNESIUM
  7. MANNATECH BRAND OPTIMALSUPPORT PACKETS [Concomitant]
  8. TEAS [Concomitant]
  9. METOPROLOL TARTRATE. [Concomitant]
     Active Substance: METOPROLOL TARTRATE
  10. AMBILIFY [Concomitant]
  11. SERTRALINE HCL [Concomitant]
     Active Substance: SERTRALINE HYDROCHLORIDE
  12. POTASSIUM [Concomitant]
     Active Substance: POTASSIUM
  13. GARLIC ROOT [Concomitant]
  14. IRON [Concomitant]
     Active Substance: IRON

REACTIONS (4)
  - Nervousness [None]
  - Scratch [None]
  - Pruritus [None]
  - Scab [None]
